FAERS Safety Report 19237615 (Version 2)
Quarter: 2023Q4

REPORT INFORMATION
  Report Type: Other
  Country: CA (occurrence: CA)
  Receive Date: 20210510
  Receipt Date: 20231219
  Transmission Date: 20240110
  Serious: Yes (Death, Hospitalization, Other)
  Sender: FDA-Public Use
  Company Number: CA-APOTEX-2021AP011033

PATIENT
  Age: 75 Year
  Sex: Female

DRUGS (10)
  1. ONDANSETRON [Suspect]
     Active Substance: ONDANSETRON
     Indication: Prophylaxis of nausea and vomiting
     Dosage: 8 MILLIGRAM
     Route: 048
  2. ONDANSETRON [Suspect]
     Active Substance: ONDANSETRON
     Indication: Prophylaxis against diarrhoea
  3. AFINITOR [Suspect]
     Active Substance: EVEROLIMUS
     Indication: Product used for unknown indication
     Dosage: UNK
     Route: 065
  4. AFINITOR [Suspect]
     Active Substance: EVEROLIMUS
     Dosage: 5 MILLIGRAM, QD
     Route: 048
  5. MORPHINE [Suspect]
     Active Substance: MORPHINE
     Indication: Product used for unknown indication
     Dosage: UNK
     Route: 065
  6. SANDOSTATIN LAR DEPOT [Suspect]
     Active Substance: OCTREOTIDE ACETATE
     Indication: Carcinoid tumour
     Dosage: 30 MILLIGRAM, Q.M.T.
     Route: 030
  7. SANDOSTATIN LAR DEPOT [Suspect]
     Active Substance: OCTREOTIDE ACETATE
     Dosage: 30 MILLIGRAM, Q.M.T.
     Route: 030
  8. SANDOSTATIN LAR DEPOT [Suspect]
     Active Substance: OCTREOTIDE ACETATE
     Dosage: 60 MILLIGRAM, Q.M.T.
     Route: 030
  9. ONDANSETRON [Suspect]
     Active Substance: ONDANSETRON
     Indication: Prophylaxis of nausea and vomiting
     Dosage: 8 MILLIGRAM
     Route: 048
  10. ONDANSETRON [Suspect]
     Active Substance: ONDANSETRON
     Indication: Prophylaxis against diarrhoea

REACTIONS (38)
  - Death [Fatal]
  - 5-hydroxyindolacetic acid in urine [Unknown]
  - Arthralgia [Unknown]
  - Asthenia [Unknown]
  - Back pain [Unknown]
  - Blood pressure systolic increased [Unknown]
  - Breast cancer stage II [Unknown]
  - Breast pain [Unknown]
  - Dysstasia [Unknown]
  - Emphysema [Unknown]
  - Feeling abnormal [Unknown]
  - Flatulence [Unknown]
  - Gait disturbance [Unknown]
  - Hypertension [Unknown]
  - Illness [Unknown]
  - Incorrect dose administered [Unknown]
  - Influenza like illness [Unknown]
  - Injection site pain [Unknown]
  - Intestinal obstruction [Unknown]
  - Joint injury [Unknown]
  - Malignant neoplasm progression [Unknown]
  - Metastases to liver [Unknown]
  - Nausea [Unknown]
  - Nervousness [Unknown]
  - Oedema [Unknown]
  - Pain [Unknown]
  - Osteoarthritis [Unknown]
  - Pancreatic neuroendocrine tumour metastatic [Unknown]
  - Terminal state [Unknown]
  - Vomiting [Unknown]
  - Second primary malignancy [Unknown]
  - Product use in unapproved indication [Unknown]
  - Malaise [Unknown]
  - Headache [Unknown]
  - Dizziness [Unknown]
  - Diarrhoea [Unknown]
  - Chest pain [Unknown]
  - Abdominal pain [Unknown]
